FAERS Safety Report 6708642-5 (Version None)
Quarter: 2010Q2

REPORT INFORMATION
  Report Type: 
  Country: None (occurrence: None)
  Receive Date: 20100503
  Receipt Date: 20100430
  Transmission Date: 20101027
  Serious: Yes (Hospitalization)
  Sender: FDA-Public Use
  Company Number: JP-SANOFI-AVENTIS-2010SA025019

PATIENT
  Age: 66 Year
  Sex: Male

DRUGS (18)
  1. ELPLAT [Suspect]
     Dates: start: 20100218, end: 20100218
  2. ELPLAT [Suspect]
     Dates: start: 20100311, end: 20100311
  3. TS-1 [Suspect]
     Route: 048
     Dates: start: 20100218, end: 20100325
  4. EXCELASE [Concomitant]
     Indication: DYSPEPSIA
     Route: 048
  5. SEVEN EP [Concomitant]
     Indication: DYSPEPSIA
     Route: 048
  6. TAKEPRON [Concomitant]
     Indication: GASTRITIS
     Route: 048
  7. LASIX [Concomitant]
     Route: 048
     Dates: start: 20100312
  8. MAGNESIUM OXIDE [Concomitant]
     Indication: CONSTIPATION
     Route: 048
  9. AMOBAN [Concomitant]
     Indication: INSOMNIA
     Route: 048
     Dates: start: 20100219
  10. OXYCONTIN [Concomitant]
     Indication: CANCER PAIN
     Route: 048
     Dates: start: 20100210
  11. OXINORM [Concomitant]
     Indication: CANCER PAIN
     Route: 048
     Dates: start: 20100209
  12. KAYTWO [Concomitant]
     Route: 048
     Dates: start: 20100220
  13. NOVORAPID [Concomitant]
     Indication: DIABETES MELLITUS
     Route: 058
     Dates: start: 20100209
  14. LAXOBERON [Concomitant]
     Indication: CONSTIPATION
     Route: 048
     Dates: start: 20100221
  15. ALDACTONE [Concomitant]
     Indication: ASCITES
     Route: 048
     Dates: start: 20100330
  16. RINDERON [Concomitant]
     Indication: DECREASED APPETITE
     Route: 048
     Dates: start: 20100325
  17. NAPROXEN [Concomitant]
     Route: 048
     Dates: start: 20100401
  18. KETOPROFEN [Concomitant]
     Indication: BACK PAIN
     Dates: start: 20100303

REACTIONS (1)
  - HEPATIC ENCEPHALOPATHY [None]
